FAERS Safety Report 9306534 (Version 1)
Quarter: 2013Q2

REPORT INFORMATION
  Report Type: Spontaneous
  Country: BR (occurrence: BR)
  Receive Date: 20130523
  Receipt Date: 20130523
  Transmission Date: 20140414
  Serious: Yes (Other)
  Sender: FDA-Public Use
  Company Number: BR-PFIZER INC-2013152245

PATIENT
  Age: 70 Year
  Sex: Female

DRUGS (1)
  1. XALATAN [Suspect]
     Indication: GLAUCOMA
     Dosage: 3 UG, 1 DROP IN EACH EYE 2X/DAY
     Route: 047
     Dates: start: 2011

REACTIONS (2)
  - Blindness [Not Recovered/Not Resolved]
  - Off label use [Not Recovered/Not Resolved]
